FAERS Safety Report 22535119 (Version 3)
Quarter: 2023Q2

REPORT INFORMATION
  Report Type: Other
  Country: US (occurrence: None)
  Receive Date: 20230608
  Receipt Date: 20230616
  Transmission Date: 20230721
  Serious: No
  Sender: FDA-Public Use
  Company Number: US-ROCHE-3363501

PATIENT
  Age: 43 Year
  Sex: Female
  Weight: 101.7 kg

DRUGS (5)
  1. OCREVUS [Suspect]
     Active Substance: OCRELIZUMAB
     Indication: Relapsing-remitting multiple sclerosis
     Dosage: THEN 600 MG EVERY 6 MONTHS
     Route: 042
  2. MYRBETRIQ [Concomitant]
     Active Substance: MIRABEGRON
  3. CYCLOBENZAPRINE [Concomitant]
     Active Substance: CYCLOBENZAPRINE
  4. VITAMIN D3 [Concomitant]
     Active Substance: CHOLECALCIFEROL
  5. MELATONIN [Concomitant]
     Active Substance: MELATONIN

REACTIONS (6)
  - Cystitis [Unknown]
  - Vaginal infection [Unknown]
  - Skin necrosis [Unknown]
  - Influenza A virus test positive [Recovered/Resolved]
  - COVID-19 [Recovered/Resolved]
  - Influenza B virus test positive [Recovered/Resolved]

NARRATIVE: CASE EVENT DATE: 20230101
